FAERS Safety Report 24316062 (Version 1)
Quarter: 2024Q3

REPORT INFORMATION
  Report Type: Spontaneous
  Country: JP (occurrence: JP)
  Receive Date: 20240913
  Receipt Date: 20240913
  Transmission Date: 20241017
  Serious: Yes (Other)
  Sender: Carnegie Pharmaceuticals
  Company Number: JP-CARNEGIE-000041

PATIENT
  Age: 65 Year
  Sex: Female

DRUGS (4)
  1. LAPATINIB [Suspect]
     Active Substance: LAPATINIB
     Indication: Metastases to bone
     Route: 065
  2. LAPATINIB [Suspect]
     Active Substance: LAPATINIB
     Indication: Invasive ductal breast carcinoma
     Route: 065
  3. LETROZOLE [Suspect]
     Active Substance: LETROZOLE
     Indication: Metastases to bone
     Route: 065
  4. LETROZOLE [Suspect]
     Active Substance: LETROZOLE
     Indication: Invasive ductal breast carcinoma
     Route: 065

REACTIONS (3)
  - Electrocardiogram QT prolonged [Unknown]
  - Hypocalcaemia [Recovered/Resolved]
  - Dry mouth [Unknown]
